FAERS Safety Report 20327928 (Version 1)
Quarter: 2022Q1

REPORT INFORMATION
  Report Type: Spontaneous
  Country: US (occurrence: None)
  Receive Date: 20220111
  Receipt Date: 20220111
  Transmission Date: 20220423
  Serious: Yes (Life-Threatening, Hospitalization)
  Sender: FDA-Public Use
  Company Number: None

PATIENT
  Age: 66 Year
  Sex: Male
  Weight: 145.7 kg

DRUGS (15)
  1. BAMLANIVIMAB\ETESEVIMAB [Suspect]
     Active Substance: BAMLANIVIMAB\ETESEVIMAB
     Indication: COVID-19
     Dosage: FREQUENCY : ONCE;?
     Route: 042
     Dates: start: 20220108, end: 20220108
  2. AMIODARONE [Concomitant]
     Active Substance: AMIODARONE
     Dates: start: 20220108, end: 20220108
  3. ASPIRIN [Concomitant]
     Active Substance: ASPIRIN
     Dates: start: 20220108
  4. BUPROPION [Concomitant]
     Active Substance: BUPROPION
  5. CITALOPRAM [Concomitant]
     Active Substance: CITALOPRAM HYDROBROMIDE
     Dates: end: 20220108
  6. MUCINEX [Concomitant]
     Active Substance: GUAIFENESIN
     Dates: start: 20220108
  7. HEPARIN [Concomitant]
     Active Substance: HEPARIN SODIUM
  8. HYDROCORTISONE [Concomitant]
     Active Substance: HYDROCORTISONE
  9. INSULIN GLARGINE [Concomitant]
     Active Substance: INSULIN GLARGINE
  10. LEVOTHYROXINE [Concomitant]
     Active Substance: LEVOTHYROXINE
     Dates: start: 20220108
  11. Iorazepam [Concomitant]
     Dates: start: 20220108
  12. MAGNESIUM [Concomitant]
     Active Substance: MAGNESIUM
     Dates: start: 20220108, end: 20220108
  13. PANTOPRAZOLE [Concomitant]
     Active Substance: PANTOPRAZOLE
     Dates: start: 20220108, end: 20220111
  14. POTASSIUM CHLORIDE [Concomitant]
     Active Substance: POTASSIUM CHLORIDE
  15. ISOPROTERENOL [Concomitant]
     Active Substance: ISOPROTERENOL
     Dates: start: 20220108, end: 20220108

REACTIONS (5)
  - Ventricular tachycardia [None]
  - Ventricular extrasystoles [None]
  - Arrhythmia [None]
  - Bradycardia [None]
  - Electrocardiogram QT prolonged [None]

NARRATIVE: CASE EVENT DATE: 20220108
